FAERS Safety Report 5794457-1 (Version None)
Quarter: 2008Q2

REPORT INFORMATION
  Report Type: 
  Country: None (occurrence: None)
  Receive Date: 20080630
  Receipt Date: 20080617
  Transmission Date: 20081010
  Serious: Yes (Other)
  Sender: FDA-Public Use
  Company Number: PHHY2008AU11422

PATIENT
  Age: 8 Year

DRUGS (2)
  1. TEGRETOL [Suspect]
     Dosage: UNK
  2. EPILIM [Concomitant]

REACTIONS (1)
  - AGGRESSION [None]
